FAERS Safety Report 4408516-9 (Version None)
Quarter: 2004Q3

REPORT INFORMATION
  Report Type: 
  Country: None (occurrence: None)
  Receive Date: 20040726
  Receipt Date: 20040726
  Transmission Date: 20050211
  Serious: Yes (Death)
  Sender: FDA-Public Use
  Company Number: None

PATIENT
  Age: 87 Year
  Sex: Female
  Weight: 53 kg

DRUGS (7)
  1. POLYMYXIN B SULFATE [Suspect]
     Indication: PNEUMONIA
     Dosage: 1,250,000 UNITS IV, 500,000 UNITS IV
     Route: 042
     Dates: start: 20040612, end: 20040621
  2. POLYMYXIN B SULFATE [Suspect]
     Indication: SEPSIS
     Dosage: 1,250,000 UNITS IV, 500,000 UNITS IV
     Route: 042
     Dates: start: 20040612, end: 20040621
  3. POLYMYXIN B SULFATE [Suspect]
     Indication: PNEUMONIA
     Dosage: 1,250,000 UNITS IV, 500,000 UNITS IV
     Route: 042
     Dates: start: 20040610
  4. POLYMYXIN B SULFATE [Suspect]
     Indication: SEPSIS
     Dosage: 1,250,000 UNITS IV, 500,000 UNITS IV
     Route: 042
     Dates: start: 20040610
  5. VANCO [Concomitant]
  6. IMIPENIM [Concomitant]
  7. NEURONTIN [Concomitant]

REACTIONS (3)
  - PLATELET COUNT DECREASED [None]
  - SEPSIS [None]
  - WHITE BLOOD CELL COUNT DECREASED [None]
